FAERS Safety Report 6428744-0 (Version None)
Quarter: 2009Q4

REPORT INFORMATION
  Report Type: 
  Country: None (occurrence: None)
  Receive Date: 20091027
  Receipt Date: 20091014
  Transmission Date: 20100525
  Serious: Yes (Disabling, Other)
  Sender: FDA-Public Use
  Company Number: 09US002875

PATIENT
  Age: 51 Year
  Sex: Female

DRUGS (1)
  1. TRIPLE ANTIBIOTIC OINTMENT [Suspect]
     Indication: SUNBURN
     Dosage: TWO APPLICATIONS, TOPICAL
     Route: 061
     Dates: start: 20050626, end: 20050626

REACTIONS (23)
  - ABASIA [None]
  - APPLICATION SITE BURN [None]
  - APPLICATION SITE ERYTHEMA [None]
  - APPLICATION SITE PAIN [None]
  - APPLICATION SITE SWELLING [None]
  - APPLICATION SITE VESICLES [None]
  - BLISTER [None]
  - BURN INFECTION [None]
  - CAPILLARY DISORDER [None]
  - CELLULITIS [None]
  - CULTURE WOUND POSITIVE [None]
  - EMOTIONAL DISTRESS [None]
  - ERYTHEMA [None]
  - IMPAIRED HEALING [None]
  - POST THROMBOTIC SYNDROME [None]
  - RASH [None]
  - SCAR [None]
  - SKIN DISCOLOURATION [None]
  - SKIN DISORDER [None]
  - SKIN ULCER [None]
  - STASIS DERMATITIS [None]
  - STREPTOCOCCAL INFECTION [None]
  - WOUND INFECTION STAPHYLOCOCCAL [None]
